FAERS Safety Report 25432308 (Version 1)
Quarter: 2025Q2

REPORT INFORMATION
  Report Type: Spontaneous
  Country: US (occurrence: US)
  Receive Date: 20250613
  Receipt Date: 20250613
  Transmission Date: 20250716
  Serious: No
  Sender: SANOFI AVENTIS
  Company Number: US-SANOFI-02550814

PATIENT
  Age: 57 Year
  Sex: Female
  Weight: 68.95 kg

DRUGS (15)
  1. TZIELD [Suspect]
     Active Substance: TEPLIZUMAB-MZWV
     Indication: Diabetes prophylaxis
     Route: 042
     Dates: start: 20250519, end: 20250519
  2. TZIELD [Suspect]
     Active Substance: TEPLIZUMAB-MZWV
     Route: 042
     Dates: start: 20250520, end: 20250520
  3. TZIELD [Suspect]
     Active Substance: TEPLIZUMAB-MZWV
     Route: 042
     Dates: start: 20250521, end: 20250521
  4. TZIELD [Suspect]
     Active Substance: TEPLIZUMAB-MZWV
     Route: 042
     Dates: start: 20250522, end: 20250522
  5. SYNTHROID [Concomitant]
     Active Substance: LEVOTHYROXINE SODIUM
     Dosage: 100 UG, QD
  6. SYNTHROID [Concomitant]
     Active Substance: LEVOTHYROXINE SODIUM
     Dosage: 112 UG, QD
  7. OZEMPIC [Concomitant]
     Active Substance: SEMAGLUTIDE
     Dosage: 0.5 MG PEN INJECTOR ONCE A WEEK
  8. ATENOLOL [Concomitant]
     Active Substance: ATENOLOL
     Dosage: 25 MG, QD
  9. ATORVASTATIN [Concomitant]
     Active Substance: ATORVASTATIN
  10. METFORMIN [Concomitant]
     Active Substance: METFORMIN HYDROCHLORIDE
     Dosage: 500 MG, BID
  11. HYOSCYAMINE [Concomitant]
     Active Substance: HYOSCYAMINE
  12. FLUCONAZOLE [Concomitant]
     Active Substance: FLUCONAZOLE
     Dosage: 150 MG, QD
  13. APAP [Concomitant]
     Active Substance: ACETAMINOPHEN
  14. REMERON [Concomitant]
     Active Substance: MIRTAZAPINE
     Dosage: 30 MG, QD (QPM)
  15. REPAGLINIDE [Concomitant]
     Active Substance: REPAGLINIDE

REACTIONS (7)
  - Blood test abnormal [Not Recovered/Not Resolved]
  - Memory impairment [Recovered/Resolved]
  - Confusional state [Recovered/Resolved]
  - Skin burning sensation [Recovered/Resolved]
  - Pruritus [Recovered/Resolved]
  - Nausea [Recovering/Resolving]
  - Vomiting [Recovering/Resolving]

NARRATIVE: CASE EVENT DATE: 20250101
